FAERS Safety Report 18684452 (Version 2)
Quarter: 2021Q3

REPORT INFORMATION
  Report Type: Report from Study
  Country: BR (occurrence: BR)
  Receive Date: 20201230
  Receipt Date: 20210915
  Transmission Date: 20211014
  Serious: Yes (Other)
  Sender: FDA-Public Use
  Company Number: BR-TAKEDA-BR202010112

PATIENT
  Age: 15 Year
  Sex: Male
  Weight: 60 kg

DRUGS (9)
  1. HEMO?8R [Suspect]
     Active Substance: ANTIHEMOPHILIC FACTOR, HUMAN RECOMBINANT
     Dosage: 1000 INTERNATIONAL UNIT, ON TUESDAYS AND FRIDAYS
     Route: 042
     Dates: start: 20190501
  2. IBUPROFEN. [Concomitant]
     Active Substance: IBUPROFEN
     Indication: HEADACHE
  3. TRANSAMIN [Concomitant]
     Active Substance: TRANEXAMIC ACID
     Indication: HAEMORRHAGE
     Dosage: 250 MILLIGRAM, AS REQ^D
     Route: 048
     Dates: start: 201911
  4. HEMO?8R [Suspect]
     Active Substance: ANTIHEMOPHILIC FACTOR, HUMAN RECOMBINANT
     Dosage: 1500 INTERNATIONAL UNIT
     Route: 042
     Dates: start: 20210625
  5. PARACETAMOL [Concomitant]
     Active Substance: ACETAMINOPHEN
     Indication: HEADACHE
  6. IBUPROFEN. [Concomitant]
     Active Substance: IBUPROFEN
     Indication: PAIN
     Dosage: 600 MILLIGRAM, AS REQ^D
     Route: 048
  7. RINOSORO [Concomitant]
     Indication: RHINITIS
  8. HEMO?8R [Suspect]
     Active Substance: ANTIHEMOPHILIC FACTOR, HUMAN RECOMBINANT
     Indication: FACTOR VIII DEFICIENCY
     Dosage: 1000 INTERNATIONAL UNIT
     Route: 042
     Dates: start: 20190501
  9. PARACETAMOL [Concomitant]
     Active Substance: ACETAMINOPHEN
     Indication: PAIN
     Dosage: 500 MILLIGRAM, AS REQ^D
     Route: 048

REACTIONS (9)
  - Skin laceration [Recovered/Resolved]
  - Contusion [Recovered/Resolved]
  - Tooth disorder [Unknown]
  - Keratoconus [Unknown]
  - Limb injury [Recovered/Resolved]
  - Head injury [Recovered/Resolved]
  - Back pain [Recovered/Resolved]
  - Overweight [Recovered/Resolved]
  - Migraine [Unknown]

NARRATIVE: CASE EVENT DATE: 20201201
